FAERS Safety Report 6671860-9 (Version None)
Quarter: 2010Q2

REPORT INFORMATION
  Report Type: 
  Country: None (occurrence: None)
  Receive Date: 20100407
  Receipt Date: 20100403
  Transmission Date: 20101027
  Serious: Yes (Death)
  Sender: FDA-Public Use
  Company Number: US-GILEAD-2010-0028301

PATIENT
  Sex: Female

DRUGS (7)
  1. LETAIRIS [Suspect]
     Indication: PULMONARY ARTERIAL HYPERTENSION
     Route: 048
     Dates: start: 20080919, end: 20100330
  2. BAYER LOW STRENGTH [Concomitant]
  3. QUININE SULFATE [Concomitant]
  4. PREDNISONE TAB [Concomitant]
  5. ACIPHEX [Concomitant]
  6. FOSAMAX [Concomitant]
  7. PREMARIN [Concomitant]

REACTIONS (1)
  - DEATH [None]
